FAERS Safety Report 8871764 (Version 2)
Quarter: 2012Q4

REPORT INFORMATION
  Report Type: 
  Country: AT (occurrence: AT)
  Receive Date: 20121029
  Receipt Date: 20121031
  Transmission Date: 20130627
  Serious: Yes (Other)
  Sender: FDA-Public Use
  Company Number: PHHY2012AT095816

PATIENT
  Sex: Female
  Weight: 55 kg

DRUGS (5)
  1. AFINITOR [Suspect]
     Indication: BREAST CANCER
     Dosage: 10 mg, daily
     Dates: start: 20120814, end: 20120910
  2. AFINITOR [Suspect]
     Dosage: 5 mg, daily
     Dates: start: 20120928
  3. AROMASIN [Concomitant]
     Dosage: 1 DF, QD
     Route: 048
  4. ULCOGANT [Concomitant]
     Dosage: 3 DF, TID
     Route: 048
  5. ZOMETA [Concomitant]
     Dosage: UNK
     Route: 042

REACTIONS (2)
  - Oesophagitis [Recovered/Resolved]
  - Stomatitis [Recovered/Resolved]
